FAERS Safety Report 5177229-0 (Version None)
Quarter: 2006Q4

REPORT INFORMATION
  Report Type: 
  Country: None (occurrence: None)
  Receive Date: 20061218
  Receipt Date: 20061205
  Transmission Date: 20070319
  Serious: No
  Sender: FDA-Public Use
  Company Number: DE-ELI_LILLY_AND_COMPANY-DE200612001729

PATIENT

DRUGS (1)
  1. STRATTERA [Suspect]

REACTIONS (1)
  - ELECTROCARDIOGRAM QT CORRECTED INTERVAL [None]
